FAERS Safety Report 7005942-9 (Version None)
Quarter: 2010Q3

REPORT INFORMATION
  Report Type: 
  Country: None (occurrence: None)
  Receive Date: 20100921
  Receipt Date: 20100908
  Transmission Date: 20110219
  Serious: Yes (Death, Hospitalization)
  Sender: FDA-Public Use
  Company Number: SK-ELI_LILLY_AND_COMPANY-SK201008004828

PATIENT
  Age: 21 Year
  Sex: Male
  Weight: 75 kg

DRUGS (4)
  1. ZYPADHERA [Suspect]
     Indication: SCHIZOPHRENIA
     Dosage: 300 MG, EVERY 2 WEEKS
     Route: 030
     Dates: start: 20100712
  2. ZYPADHERA [Suspect]
     Dosage: 405 MG, EVERY 2 WEEKS
     Route: 030
     Dates: start: 20100726
  3. OLANZAPINE [Suspect]
     Indication: SCHIZOPHRENIA
     Dosage: 20 MG, DAILY (1/D)
     Route: 048
     Dates: start: 20100620, end: 20100714
  4. HALOPERIDOL [Concomitant]
     Indication: SCHIZOPHRENIA
     Dosage: 9 MG, DAILY (1/D)
     Route: 048
     Dates: start: 20100620

REACTIONS (3)
  - COMPLETED SUICIDE [None]
  - OVERDOSE [None]
  - PSYCHIATRIC DECOMPENSATION [None]
